FAERS Safety Report 15053890 (Version 1)
Quarter: 2018Q2

REPORT INFORMATION
  Report Type: Spontaneous
  Country: US (occurrence: US)
  Receive Date: 20180603
  Receipt Date: 20180603
  Transmission Date: 20180711
  Serious: No
  Sender: FDA-Public Use
  Company Number: None

PATIENT
  Age: 40 Year
  Sex: Female
  Weight: 81 kg

DRUGS (8)
  1. VITAMIN D3 [Concomitant]
     Active Substance: CHOLECALCIFEROL
  2. PROBIOTICS [Concomitant]
     Active Substance: PROBIOTICS NOS
  3. VINPOCETINE [Concomitant]
     Active Substance: VINPOCETINE
  4. CETIRIZINE HYDROCHLORIDE. [Concomitant]
     Active Substance: CETIRIZINE HYDROCHLORIDE
  5. FAMOTIDINE. [Concomitant]
     Active Substance: FAMOTIDINE
  6. LEVOTHRYROXINE [Concomitant]
  7. CLARITHROMYCIN 500 MG [Suspect]
     Active Substance: CLARITHROMYCIN
     Indication: SINUSITIS
     Dosage: ?          QUANTITY:1 DF DOSAGE FORM;?
     Route: 048
     Dates: start: 20180531, end: 20180602
  8. VITAMIN B12 [Concomitant]
     Active Substance: CYANOCOBALAMIN

REACTIONS (13)
  - Tinnitus [None]
  - Nausea [None]
  - Thinking abnormal [None]
  - Abdominal pain upper [None]
  - Fear [None]
  - Night sweats [None]
  - Insomnia [None]
  - Productive cough [None]
  - Haemoptysis [None]
  - Headache [None]
  - Wheezing [None]
  - Rales [None]
  - Dysgeusia [None]

NARRATIVE: CASE EVENT DATE: 20180601
